FAERS Safety Report 24650512 (Version 1)
Quarter: 2024Q4

REPORT INFORMATION
  Report Type: Spontaneous
  Country: US (occurrence: US)
  Receive Date: 20241122
  Receipt Date: 20241122
  Transmission Date: 20250114
  Serious: No
  Sender: ALVOGEN
  Company Number: US-ALVOGEN-2024092861

PATIENT
  Sex: Female

DRUGS (1)
  1. TERIPARATIDE [Suspect]
     Active Substance: TERIPARATIDE
     Indication: Osteoporosis
     Dosage: 20 MCG?FREQUENCY: DAILY?250 MCG/ML
     Route: 058
     Dates: start: 202208

REACTIONS (3)
  - Asthenia [Unknown]
  - Dizziness [Unknown]
  - Pain [Unknown]
